FAERS Safety Report 18622398 (Version 1)
Quarter: 2020Q4

REPORT INFORMATION
  Report Type: Spontaneous
  Country: US (occurrence: US)
  Receive Date: 20201215
  Receipt Date: 20201215
  Transmission Date: 20210114
  Serious: Yes (Hospitalization)
  Sender: FDA-Public Use
  Company Number: None

PATIENT
  Age: 48 Year
  Sex: Female

DRUGS (17)
  1. DESVENLAFAX TAB [Concomitant]
  2. GABAPENTIN CAP [Concomitant]
     Active Substance: GABAPENTIN
  3. FORTEO [Suspect]
     Active Substance: TERIPARATIDE
     Indication: OSTEOPOROSIS
     Route: 058
     Dates: start: 20200424, end: 20201215
  4. ATORVASTATIN TAB [Concomitant]
     Active Substance: ATORVASTATIN
  5. BIMATOPROST SOL [Concomitant]
  6. BUSPIRONE TAB [Concomitant]
  7. ESTRADIOL TAB [Concomitant]
     Active Substance: ESTRADIOL
  8. OMEPRAZOLE CAP [Concomitant]
     Active Substance: OMEPRAZOLE SODIUM
  9. ONDANSETRON TAB [Concomitant]
  10. PRAZOSIN HCL CAP [Concomitant]
  11. LEVOTHYROXIN TAB [Concomitant]
  12. TRAZODONE TAB [Concomitant]
  13. PROMETHAZINE [Concomitant]
     Active Substance: PROMETHAZINE HYDROCHLORIDE
  14. TACROLIMUS CAP [Concomitant]
     Active Substance: TACROLIMUS
  15. TRAMADOL HCL TAB [Concomitant]
  16. FUROSEMIDE TAB [Concomitant]
  17. ALPRAZOLAM TAB [Concomitant]

REACTIONS (1)
  - Hepatic infection bacterial [None]

NARRATIVE: CASE EVENT DATE: 20201124
